FAERS Safety Report 17964060 (Version 1)
Quarter: 2020Q2

REPORT INFORMATION
  Report Type: Report from Study
  Country: IT (occurrence: IT)
  Receive Date: 20200630
  Receipt Date: 20200630
  Transmission Date: 20200714
  Serious: Yes (Life-Threatening, Hospitalization)
  Sender: FDA-Public Use
  Company Number: IT-AMERICAN REGENT INC-20181442

PATIENT
  Age: 65 Year
  Sex: Male
  Weight: 86.9 kg

DRUGS (9)
  1. FERINJECT [Suspect]
     Active Substance: FERRIC CARBOXYMALTOSE
     Indication: IRON DEFICIENCY
     Dosage: 10 ML (ONE KIT)
     Dates: start: 20180530, end: 20180530
  2. PANTOPRAZOLE [Concomitant]
     Active Substance: PANTOPRAZOLE
     Indication: PROPHYLAXIS
     Dosage: 20 MG (20 MG, 1 IN 1 D)
     Route: 048
     Dates: start: 2017
  3. WARFARIN [Concomitant]
     Active Substance: WARFARIN
     Indication: ATRIAL FIBRILLATION
     Dosage: MG, 1 IN 1 D
     Route: 048
  4. ASA [Concomitant]
     Active Substance: ASPIRIN
     Indication: MYOCARDIAL INFARCTION
     Dosage: 100 MG (100 MG, 1 IN 1 D)
     Route: 048
     Dates: start: 2009
  5. FERINJECT [Suspect]
     Active Substance: FERRIC CARBOXYMALTOSE
     Indication: CARDIAC FAILURE ACUTE
     Dosage: 20 ML (TWO KITS)
     Dates: start: 20180423, end: 20180423
  6. BISOPROLOL [Concomitant]
     Active Substance: BISOPROLOL
     Indication: CARDIAC FAILURE
     Dosage: 7.5 MG (3.75 MG, 2 IN 1 D)
     Route: 048
     Dates: start: 2017
  7. LASIX [Concomitant]
     Active Substance: FUROSEMIDE
     Indication: CARDIAC FAILURE
     Dosage: 250 MG (250 MG, 1 IN 1 D)
     Route: 042
     Dates: start: 20180418, end: 20180419
  8. CANRENONE [Concomitant]
     Active Substance: CANRENONE
     Indication: CARDIAC FAILURE
     Dosage: 50 MG (50 MG, 1 IN 1 D)
     Route: 048
     Dates: start: 2018
  9. FLUTICASONE PROPIONATE W/SALMETEROL XINAFOATE [Concomitant]
     Active Substance: FLUTICASONE PROPIONATE\SALMETEROL XINAFOATE
     Indication: CHRONIC OBSTRUCTIVE PULMONARY DISEASE
     Dosage: 1 PUFF. (1 DOSAGE FORMS, 2 IN 1 D)
     Route: 055

REACTIONS (1)
  - Ventricular arrhythmia [Recovered/Resolved]

NARRATIVE: CASE EVENT DATE: 20180710
